FAERS Safety Report 15483640 (Version 1)
Quarter: 2018Q4

REPORT INFORMATION
  Report Type: Report from Study
  Country: US (occurrence: US)
  Receive Date: 20181010
  Receipt Date: 20181010
  Transmission Date: 20190205
  Serious: Yes (Death)
  Sender: FDA-Public Use
  Company Number: US-ASTRAZENECA-2018SF29349

PATIENT
  Sex: Female

DRUGS (16)
  1. ASPIRIN. [Concomitant]
     Active Substance: ASPIRIN
  2. POTASSIUM [Concomitant]
     Active Substance: POTASSIUM
  3. FASENRA [Suspect]
     Active Substance: BENRALIZUMAB
     Indication: ASTHMA
     Route: 058
  4. ATORVASTATIN [Concomitant]
     Active Substance: ATORVASTATIN
  5. FUROSEMIDE. [Concomitant]
     Active Substance: FUROSEMIDE
  6. METFORMIN HYDROCHLORIDE. [Concomitant]
     Active Substance: METFORMIN HYDROCHLORIDE
  7. SPIRONOLACTONE. [Concomitant]
     Active Substance: SPIRONOLACTONE
  8. VITAMIN D [Concomitant]
     Active Substance: CHOLECALCIFEROL
  9. CALCIUM [Concomitant]
     Active Substance: CALCIUM
  10. CARVEDIOL [Concomitant]
     Active Substance: CARVEDILOL
  11. DEXILANT [Concomitant]
     Active Substance: DEXLANSOPRAZOLE
  12. DILTIAZEM. [Concomitant]
     Active Substance: DILTIAZEM
  13. GABAPENTIN. [Concomitant]
     Active Substance: GABAPENTIN
  14. JANUVIA [Concomitant]
     Active Substance: SITAGLIPTIN PHOSPHATE
  15. MONTELUKAST [Concomitant]
     Active Substance: MONTELUKAST SODIUM
  16. XARELTO [Concomitant]
     Active Substance: RIVAROXABAN

REACTIONS (1)
  - Myocardial infarction [Fatal]
